FAERS Safety Report 6732749-X (Version None)
Quarter: 2010Q2

REPORT INFORMATION
  Report Type: 
  Country: None (occurrence: None)
  Receive Date: 20100519
  Receipt Date: 20100506
  Transmission Date: 20101027
  Serious: Yes (Hospitalization)
  Sender: FDA-Public Use
  Company Number: US-ELI_LILLY_AND_COMPANY-US201005002315

PATIENT
  Age: 62 Year
  Sex: Male
  Weight: 70.748 kg

DRUGS (2)
  1. GEMZAR [Suspect]
     Indication: PANCREATIC CARCINOMA
     Dosage: 1 D/F, UNK
     Dates: start: 20100101
  2. IMMUNOSUPPRESSANTS [Concomitant]

REACTIONS (5)
  - DRUG INEFFECTIVE [None]
  - PLATELET COUNT DECREASED [None]
  - PNEUMONIA [None]
  - TUMOUR MARKER INCREASED [None]
  - WHITE BLOOD CELL COUNT DECREASED [None]
